FAERS Safety Report 10355208 (Version 2)
Quarter: 2014Q3

REPORT INFORMATION
  Report Type: Spontaneous
  Country: GB (occurrence: GB)
  Receive Date: 20140731
  Receipt Date: 20140820
  Transmission Date: 20150326
  Serious: Yes (Hospitalization, Other)
  Sender: FDA-Public Use
  Company Number: GB-ACTAVIS-2014-16398

PATIENT
  Sex: Female

DRUGS (4)
  1. RISPERIDONE (UNKNOWN) [Suspect]
     Active Substance: RISPERIDONE
     Indication: PRODUCT USED FOR UNKNOWN INDICATION
     Dosage: 5 MG, UNKNOWN
     Route: 065
  2. CLONAZEPAM. [Suspect]
     Active Substance: CLONAZEPAM
     Indication: BIPOLAR DISORDER
     Dosage: 2 MG, UNK. AUDEN MCKENZIE
     Route: 048
  3. VALPROIC ACID (UNKNOWN) [Suspect]
     Active Substance: VALPROIC ACID
     Indication: PRODUCT USED FOR UNKNOWN INDICATION
     Dosage: 1.4 G, UNKNOWN
     Route: 065
  4. ABILIFY [Suspect]
     Active Substance: ARIPIPRAZOLE
     Indication: PRODUCT USED FOR UNKNOWN INDICATION
     Dosage: 5 MG, UNKNOWN
     Route: 065

REACTIONS (8)
  - Hallucination [Unknown]
  - Delusion [Unknown]
  - Mania [Not Recovered/Not Resolved]
  - Off label use [Unknown]
  - Psychotic disorder [Not Recovered/Not Resolved]
  - Muscle spasms [Unknown]
  - Palpitations [Unknown]
  - Drug withdrawal syndrome [Unknown]
